FAERS Safety Report 9225570 (Version 1)
Quarter: 2013Q2

REPORT INFORMATION
  Report Type: Spontaneous
  Country: DE (occurrence: DE)
  Receive Date: 20130411
  Receipt Date: 20130411
  Transmission Date: 20140414
  Serious: Yes (Death)
  Sender: FDA-Public Use
  Company Number: DE-ASTRAZENECA-2013SE22776

PATIENT
  Age: 58 Year
  Sex: Female

DRUGS (5)
  1. CANDESARTAN [Suspect]
     Route: 048
  2. VALPROIC ACID [Suspect]
     Indication: BIPOLAR DISORDER
  3. DULOXETINE [Suspect]
  4. RISPERIDON [Suspect]
  5. LORAZEPAM [Suspect]

REACTIONS (1)
  - Hepatic failure [Fatal]
